FAERS Safety Report 14595034 (Version 1)
Quarter: 2018Q1

REPORT INFORMATION
  Report Type: Spontaneous
  Country: US (occurrence: US)
  Receive Date: 20180302
  Receipt Date: 20180302
  Transmission Date: 20180509
  Serious: No
  Sender: FDA-Public Use
  Company Number: US-AKORN PHARMACEUTICALS-2017AKN00098

PATIENT
  Age: 30 Year
  Sex: Female

DRUGS (4)
  1. ORTHO-NOVUM [Concomitant]
     Active Substance: ETHINYL ESTRADIOL\NORETHINDRONE
  2. MYORISAN [Suspect]
     Active Substance: ISOTRETINOIN
     Indication: STEATOCYSTOMA MULTIPLEX
     Dosage: 30 MG, 2X/DAY
     Route: 048
     Dates: start: 20161118, end: 201612
  3. AQUAPHOR OINTMENT LIP BALM [Concomitant]
     Dosage: UNK, AS NEEDED
  4. MYORISAN [Suspect]
     Active Substance: ISOTRETINOIN
     Indication: STEATOCYSTOMA MULTIPLEX
     Dosage: UNK
     Dates: start: 20161014, end: 201612

REACTIONS (4)
  - Dry skin [Recovered/Resolved]
  - Drug ineffective [Recovered/Resolved]
  - Off label use [Recovered/Resolved]
  - Lip dry [Recovered/Resolved]

NARRATIVE: CASE EVENT DATE: 201610
